FAERS Safety Report 5192750-7 (Version None)
Quarter: 2006Q4

REPORT INFORMATION
  Report Type: 
  Country: None (occurrence: None)
  Receive Date: 20061220
  Receipt Date: 20061204
  Transmission Date: 20070319
  Serious: Yes (Disabling)
  Sender: FDA-Public Use
  Company Number: NALJP-06-0600

PATIENT
  Sex: Female

DRUGS (4)
  1. NAROPIN [Suspect]
     Indication: EPIDURAL ANAESTHESIA
  2. NAROPIN [Suspect]
     Indication: SPINAL ANAESTHESIA
  3. MARCAINE [Suspect]
     Indication: EPIDURAL ANAESTHESIA
  4. MARCAINE [Suspect]
     Indication: SPINAL ANAESTHESIA

REACTIONS (3)
  - ANAESTHETIC COMPLICATION [None]
  - CAUDA EQUINA SYNDROME [None]
  - NEUROTOXICITY [None]
